FAERS Safety Report 8331651-X (Version None)
Quarter: 2012Q2

REPORT INFORMATION
  Report Type: 
  Country: None (occurrence: None)
  Receive Date: 20120502
  Receipt Date: 20111108
  Transmission Date: 20120825
  Serious: No
  Sender: FDA-Public Use
  Company Number: US-ASTRAZENECA-2011SE67979

PATIENT
  Age: 64 Year
  Sex: Female
  Weight: 68 kg

DRUGS (1)
  1. BUDESONIDE [Suspect]
     Indication: EOSINOPHILIC COLITIS
     Route: 048
     Dates: start: 20111028

REACTIONS (3)
  - OFF LABEL USE [None]
  - DISEASE RECURRENCE [None]
  - DRUG INEFFECTIVE [None]
